FAERS Safety Report 5030134-2 (Version None)
Quarter: 2006Q2

REPORT INFORMATION
  Report Type: 
  Country: None (occurrence: None)
  Receive Date: 20060614
  Receipt Date: 20060606
  Transmission Date: 20061013
  Serious: Yes (Life-Threatening, Hospitalization)
  Sender: FDA-Public Use
  Company Number: FR-2006-014608

PATIENT
  Age: 57 Year
  Sex: Male
  Weight: 98 kg

DRUGS (1)
  1. SOTALOL HYDROCHLORIDE [Suspect]
     Dosage: 400 MG, 2X/DAY, ORAL
     Route: 048
     Dates: start: 20060428, end: 20060503

REACTIONS (4)
  - ACUTE CORONARY SYNDROME [None]
  - AUTOIMMUNE THROMBOCYTOPENIA [None]
  - CARDIOGENIC SHOCK [None]
  - TROPONIN INCREASED [None]
